FAERS Safety Report 12623881 (Version 2)
Quarter: 2016Q3

REPORT INFORMATION
  Report Type: Report from Study
  Country: US (occurrence: US)
  Receive Date: 20160804
  Receipt Date: 20160826
  Transmission Date: 20161109
  Serious: Yes (Death, Hospitalization, Other)
  Sender: FDA-Public Use
  Company Number: US-ABBVIE-16K-163-1693298-00

PATIENT
  Sex: Male
  Weight: 77.18 kg

DRUGS (2)
  1. LIALDA [Concomitant]
     Active Substance: MESALAMINE
     Indication: CROHN^S DISEASE
  2. HUMIRA [Suspect]
     Active Substance: ADALIMUMAB
     Indication: CROHN^S DISEASE
     Route: 058
     Dates: start: 201401, end: 201603

REACTIONS (4)
  - Intestinal obstruction [Unknown]
  - Abdominal pain [Unknown]
  - Vomiting [Unknown]
  - Colon cancer metastatic [Fatal]

NARRATIVE: CASE EVENT DATE: 2016
